FAERS Safety Report 17864078 (Version 2)
Quarter: 2020Q2

REPORT INFORMATION
  Report Type: Spontaneous
  Country: DE (occurrence: DE)
  Receive Date: 20200605
  Receipt Date: 20200612
  Transmission Date: 20200714
  Serious: Yes (Congenital Anomaly, Other)
  Sender: FDA-Public Use
  Company Number: DE-DRREDDYS-GER/GER/20/0123617

PATIENT
  Age: 1 Day
  Sex: Female
  Weight: 3.06 kg

DRUGS (5)
  1. QUETIAPINE. [Suspect]
     Active Substance: QUETIAPINE
     Dosage: 150 [MG/D (BIS 50) ]/ DOSAGE WAS SLOWLY REDUCED UNTIL GW 12 5/7
     Route: 064
  2. CLEXANE [Concomitant]
     Active Substance: ENOXAPARIN SODIUM
     Indication: PRODUCT USED FOR UNKNOWN INDICATION
     Dosage: 4000 [IE/D ]
     Route: 064
     Dates: start: 20191024, end: 20191127
  3. QUETIAPINE. [Suspect]
     Active Substance: QUETIAPINE
     Indication: PRODUCT USED FOR UNKNOWN INDICATION
     Dosage: 150 [MG/D (BIS 50) ]/ DOSAGE WAS SLOWLY REDUCED UNTIL GW 12 5/7
     Route: 064
     Dates: start: 20190225, end: 20190525
  4. MOVICOL [Concomitant]
     Active Substance: POLYETHYLENE GLYCOL 3350\POTASSIUM CHLORIDE\SODIUM BICARBONATE\SODIUM CHLORIDE
     Indication: PRODUCT USED FOR UNKNOWN INDICATION
     Route: 064
     Dates: start: 20190225, end: 20190525
  5. ABILIFY [Suspect]
     Active Substance: ARIPIPRAZOLE
     Indication: PRODUCT USED FOR UNKNOWN INDICATION
     Dosage: 15 [MG/D ]
     Route: 064
     Dates: start: 20190225, end: 20191127

REACTIONS (3)
  - Foetal exposure during pregnancy [Unknown]
  - Oxygen saturation decreased [Recovered/Resolved]
  - Pulmonary valve stenosis congenital [Not Recovered/Not Resolved]

NARRATIVE: CASE EVENT DATE: 20191127
